FAERS Safety Report 20670827 (Version 1)
Quarter: 2022Q2

REPORT INFORMATION
  Report Type: Report from Study
  Country: US (occurrence: US)
  Receive Date: 20220404
  Receipt Date: 20220404
  Transmission Date: 20220721
  Serious: Yes (Hospitalization)
  Sender: FDA-Public Use
  Company Number: US-MYLANLABS-2022M1024338

PATIENT
  Age: 42 Year
  Sex: Female

DRUGS (3)
  1. AMBRISENTAN [Suspect]
     Active Substance: AMBRISENTAN
     Indication: Pulmonary hypertension
     Dosage: 10 MILLIGRAM, QD
     Route: 048
     Dates: end: 20220307
  2. WARFARIN [Concomitant]
     Active Substance: WARFARIN
     Indication: Surgery
     Dosage: 10 MILLIGRAM, QD
     Dates: start: 202203
  3. COLCHICINE [Concomitant]
     Active Substance: COLCHICINE
     Indication: Pulmonary hypertension
     Dosage: 6 MILLIGRAM, BID

REACTIONS (1)
  - Pulmonary embolism [Recovered/Resolved]

NARRATIVE: CASE EVENT DATE: 20220307
